FAERS Safety Report 8612289-3 (Version None)
Quarter: 2012Q3

REPORT INFORMATION
  Report Type: 
  Country: None (occurrence: None)
  Receive Date: 20120810
  Receipt Date: 20120810
  Transmission Date: 20120928
  Serious: Yes (Disabling, Other)
  Sender: FDA-Public Use
  Company Number: None

PATIENT
  Age: 50 Year
  Sex: Female
  Weight: 68.0396 kg

DRUGS (1)
  1. GABAPENTIN [Suspect]
     Indication: NEUROPATHY PERIPHERAL
     Dosage: 3 CAPSULES EVERY 8 HOURS PO
     Route: 048
     Dates: start: 20120621, end: 20120808

REACTIONS (4)
  - CONDITION AGGRAVATED [None]
  - PRODUCT QUALITY ISSUE [None]
  - NEUROPATHY PERIPHERAL [None]
  - NEURALGIA [None]
